FAERS Safety Report 10588470 (Version 2)
Quarter: 2014Q4

REPORT INFORMATION
  Report Type: Report from Study
  Country: BR (occurrence: BR)
  Receive Date: 20141117
  Receipt Date: 20141117
  Transmission Date: 20150529
  Serious: Yes (Death)
  Sender: FDA-Public Use
  Company Number: PHHY2006BR010403

PATIENT
  Age: 48 Year
  Sex: Female
  Weight: 82.5 kg

DRUGS (1)
  1. AMN107 [Suspect]
     Active Substance: NILOTINIB
     Indication: CHRONIC MYELOID LEUKAEMIA
     Dosage: 400 MG, QD
     Route: 048
     Dates: start: 20060509

REACTIONS (1)
  - Death [Fatal]

NARRATIVE: CASE EVENT DATE: 20060828
